FAERS Safety Report 8653770 (Version 2)
Quarter: 2012Q4

REPORT INFORMATION
  Report Type: 
  Country: FR (occurrence: FR)
  Receive Date: 20120709
  Receipt Date: 20120918
  Transmission Date: 20130627
  Serious: No
  Sender: FDA-Public Use
  Company Number: FR-JNJFOC-20120700123

PATIENT
  Sex: Female

DRUGS (4)
  1. DUROGESIC [Suspect]
     Indication: PAIN
     Dosage: half patch
     Route: 062
  2. DUROGESIC [Suspect]
     Indication: PAIN
     Dosage: 1 patch and a half
     Route: 062
  3. LYRICA [Concomitant]
     Indication: PRODUCT USED FOR UNKNOWN INDICATION
     Route: 065
  4. FORSTEO [Concomitant]
     Indication: OSTEOPOROSIS
     Route: 065

REACTIONS (1)
  - Drug prescribing error [Unknown]
